FAERS Safety Report 12924826 (Version 7)
Quarter: 2018Q3

REPORT INFORMATION
  Report Type: Report from Study
  Country: US (occurrence: US)
  Receive Date: 20161108
  Receipt Date: 20180907
  Transmission Date: 20181010
  Serious: Yes (Hospitalization)
  Sender: FDA-Public Use
  Company Number: US-ACTELION-A-US2016-145081

PATIENT
  Age: 43 Year
  Sex: Female
  Weight: 105.21 kg

DRUGS (4)
  1. LETAIRIS [Concomitant]
     Active Substance: AMBRISENTAN
  2. VELETRI [Suspect]
     Active Substance: EPOPROSTENOL
     Indication: PULMONARY HYPERTENSION
     Dosage: 38.24 NG/KG, PER MIN
     Route: 042
  3. VELETRI [Suspect]
     Active Substance: EPOPROSTENOL
     Dosage: 26.75 NG/KG, PER MIN
     Route: 042
     Dates: start: 20160229
  4. VELETRI [Suspect]
     Active Substance: EPOPROSTENOL
     Dosage: 32.9 NG/KG, PER MIN
     Route: 042

REACTIONS (20)
  - Abdominal pain upper [Unknown]
  - Muscle spasms [Unknown]
  - Gastrooesophageal reflux disease [Unknown]
  - Nausea [Unknown]
  - Weight decreased [Unknown]
  - Catheter management [Unknown]
  - Abdominal pain [Recovering/Resolving]
  - Nasopharyngitis [Unknown]
  - Decreased appetite [Unknown]
  - Pain in jaw [Unknown]
  - Dyspnoea [Unknown]
  - Feeling abnormal [Recovering/Resolving]
  - Dizziness [Unknown]
  - Fluid overload [Recovering/Resolving]
  - Haemoptysis [Unknown]
  - Chest pain [Unknown]
  - Malaise [Unknown]
  - Device connection issue [Unknown]
  - Upper respiratory tract infection [Recovering/Resolving]
  - Muscular weakness [Unknown]
